FAERS Safety Report 8184220-9 (Version None)
Quarter: 2012Q1

REPORT INFORMATION
  Report Type: 
  Country: None (occurrence: None)
  Receive Date: 20120305
  Receipt Date: 20120228
  Transmission Date: 20120608
  Serious: Yes (Death, Hospitalization, Other)
  Sender: FDA-Public Use
  Company Number: AU-ROCHE-1043260

PATIENT
  Sex: Male
  Weight: 72.8 kg

DRUGS (20)
  1. RANIBIZUMAB [Suspect]
     Indication: AGE-RELATED MACULAR DEGENERATION
     Route: 050
     Dates: start: 20100101
  2. LIPITOR [Concomitant]
  3. SLOW-K [Concomitant]
  4. PRAZOSIN HYDROCHLORIDE [Concomitant]
  5. COUMADIN [Concomitant]
  6. RANIBIZUMAB [Suspect]
     Route: 050
  7. FENTANYL-100 [Concomitant]
  8. FOSAMAX [Concomitant]
  9. METOPROLOL SUCCINATE [Concomitant]
  10. MACUVISION [Concomitant]
  11. RANIBIZUMAB [Suspect]
     Route: 050
  12. AMIODARONE HCL [Concomitant]
  13. ANDROCUR [Concomitant]
  14. COLOXYL + SENNA [Concomitant]
  15. RANIBIZUMAB [Suspect]
     Route: 050
  16. LUTEIN [Concomitant]
  17. MOVIPREP [Concomitant]
  18. ACETAMINOPHEN [Concomitant]
  19. PREDNISOLONE [Concomitant]
  20. PRINIVIL [Concomitant]

REACTIONS (3)
  - MULTIPLE MYELOMA [None]
  - RENAL FAILURE [None]
  - CARDIAC FAILURE [None]
